FAERS Safety Report 8946510 (Version 2)
Quarter: 2013Q1

REPORT INFORMATION
  Report Type: Spontaneous
  Country: US (occurrence: US)
  Receive Date: 20121204
  Receipt Date: 20130204
  Transmission Date: 20140127
  Serious: No
  Sender: FDA-Public Use
  Company Number: US-AMGEN-USASP2012072044

PATIENT
  Age: 58 Year
  Sex: Female
  Weight: 68.93 kg

DRUGS (4)
  1. ENBREL [Suspect]
     Indication: RHEUMATOID ARTHRITIS
     Dosage: 50 MG, WEEKLY
     Route: 058
     Dates: start: 20121025, end: 20121109
  2. PLAQUENIL                          /00072602/ [Concomitant]
     Indication: RHEUMATOID ARTHRITIS
     Dosage: 200 MG, QD
     Route: 048
     Dates: start: 2004
  3. SIMVASTATIN [Concomitant]
     Dosage: 90 MG, QD
     Route: 048
  4. LOSARTAN [Concomitant]
     Dosage: 50 MG, QD
     Route: 048

REACTIONS (7)
  - Hypotension [Recovered/Resolved]
  - Dizziness [Recovered/Resolved]
  - Nausea [Recovered/Resolved]
  - Hyperhidrosis [Recovered/Resolved]
  - Headache [Recovered/Resolved]
  - Oedema [Recovered/Resolved]
  - Pain [Recovered/Resolved]
